FAERS Safety Report 8731766 (Version 2)
Quarter: 2013Q2

REPORT INFORMATION
  Report Type: Spontaneous
  Country: US (occurrence: US)
  Receive Date: 20120820
  Receipt Date: 20130408
  Transmission Date: 20140414
  Serious: Yes (Other)
  Sender: FDA-Public Use
  Company Number: PHEH2012US016170

PATIENT
  Sex: Male

DRUGS (6)
  1. AREDIA [Suspect]
  2. REVLIMID [Concomitant]
  3. CYTOXAN [Concomitant]
  4. DEXAMETHASONE [Concomitant]
  5. ASPIRIN [Concomitant]
     Dosage: 81 MG, QD
  6. CHEMOTHERAPEUTICS [Concomitant]
     Dates: start: 20080509

REACTIONS (43)
  - Paraproteinaemia [Unknown]
  - Bradycardia [Unknown]
  - Renal failure chronic [Unknown]
  - Monoclonal gammopathy [Unknown]
  - Spinal osteoarthritis [Unknown]
  - Plasma cell myeloma [Unknown]
  - Pituitary tumour benign [Unknown]
  - Atrial flutter [Unknown]
  - Bundle branch block right [Unknown]
  - Hyperhomocysteinaemia [Unknown]
  - Atrioventricular block [Unknown]
  - Atrial fibrillation [Unknown]
  - Hypertension [Unknown]
  - Pneumonia [Recovered/Resolved]
  - Tachycardia [Recovered/Resolved]
  - Anaemia [Recovered/Resolved]
  - Testicular atrophy [Unknown]
  - Aortic valve incompetence [Unknown]
  - Mitral valve incompetence [Unknown]
  - Gout [Unknown]
  - Tendon rupture [Unknown]
  - Hyperlipidaemia [Unknown]
  - Neuropathy peripheral [Unknown]
  - Jaw disorder [Unknown]
  - Tooth disorder [Unknown]
  - Tooth loss [Unknown]
  - Osteolysis [Unknown]
  - Bone lesion [Unknown]
  - Blood calcium decreased [Unknown]
  - Hypogeusia [Unknown]
  - Fatigue [Unknown]
  - Constipation [Unknown]
  - Tremor [Unknown]
  - Nocturia [Unknown]
  - Tendonitis [Unknown]
  - Faeces hard [Unknown]
  - Swelling face [Unknown]
  - Pain in extremity [Unknown]
  - Skin lesion [Unknown]
  - Hypoaesthesia [Unknown]
  - Atrophy [Unknown]
  - Dyspnoea [Unknown]
  - Oedema peripheral [Unknown]
